FAERS Safety Report 12103790 (Version 5)
Quarter: 2016Q3

REPORT INFORMATION
  Report Type: Report from Study
  Country: CA (occurrence: CA)
  Receive Date: 20160223
  Receipt Date: 20160818
  Transmission Date: 20161109
  Serious: Yes (Hospitalization, Other)
  Sender: FDA-Public Use
  Company Number: CA-ROCHE-1455999

PATIENT
  Age: 62 Year
  Sex: Female

DRUGS (13)
  1. ARAVA [Concomitant]
     Active Substance: LEFLUNOMIDE
     Indication: BLOOD PRESSURE MEASUREMENT
  2. METHYLPREDNISOLONE. [Concomitant]
     Active Substance: METHYLPREDNISOLONE
     Indication: PREMEDICATION
     Route: 042
     Dates: start: 20110824, end: 20110913
  3. ACTEMRA [Suspect]
     Active Substance: TOCILIZUMAB
     Indication: RHEUMATOID ARTHRITIS
     Route: 042
     Dates: start: 20120606
  4. FOSAMAX [Concomitant]
     Active Substance: ALENDRONATE SODIUM
  5. PREDNISONE. [Concomitant]
     Active Substance: PREDNISONE
  6. PLAQUENIL [Concomitant]
     Active Substance: HYDROXYCHLOROQUINE SULFATE
  7. RITUXAN [Suspect]
     Active Substance: RITUXIMAB
     Indication: RHEUMATOID ARTHRITIS
     Dosage: FREQUENCY:  DAY 1, 15
     Route: 042
     Dates: start: 20110824, end: 20110913
  8. VENTOLIN [Concomitant]
     Active Substance: ALBUTEROL SULFATE
  9. ACETAMINOPHEN. [Concomitant]
     Active Substance: ACETAMINOPHEN
     Indication: PREMEDICATION
     Route: 048
     Dates: start: 20110824, end: 20110913
  10. METHOTREXATE. [Concomitant]
     Active Substance: METHOTREXATE
  11. DIPHENHYDRAMINE HCL [Concomitant]
     Active Substance: DIPHENHYDRAMINE HYDROCHLORIDE
     Indication: PREMEDICATION
     Route: 048
     Dates: start: 20110824, end: 20110913
  12. CELEBREX [Concomitant]
     Active Substance: CELECOXIB
  13. ACTEMRA [Suspect]
     Active Substance: TOCILIZUMAB
     Route: 042
     Dates: start: 20121217

REACTIONS (4)
  - Hyponatraemia [Unknown]
  - Colitis [Unknown]
  - Interstitial lung disease [Not Recovered/Not Resolved]
  - Joint swelling [Recovering/Resolving]

NARRATIVE: CASE EVENT DATE: 201407
